FAERS Safety Report 10615609 (Version 1)
Quarter: 2014Q4

REPORT INFORMATION
  Report Type: Spontaneous
  Country: US (occurrence: US)
  Receive Date: 20141201
  Receipt Date: 20141201
  Transmission Date: 20150529
  Serious: No
  Sender: FDA-Public Use
  Company Number: US-009507513-1411USA011308

PATIENT
  Sex: Female

DRUGS (2)
  1. OXCARBAZEPINE. [Interacting]
     Active Substance: OXCARBAZEPINE
     Dosage: UNK
  2. NEXPLANON [Suspect]
     Active Substance: ETONOGESTREL
     Dosage: UNK,
     Route: 059

REACTIONS (2)
  - No adverse event [Unknown]
  - Inhibitory drug interaction [Unknown]
